FAERS Safety Report 16415786 (Version 2)
Quarter: 2019Q3

REPORT INFORMATION
  Report Type: Spontaneous
  Country: US (occurrence: US)
  Receive Date: 20190611
  Receipt Date: 20190703
  Transmission Date: 20191004
  Serious: No
  Sender: FDA-Public Use
  Company Number: US-SA-2019SA156415

PATIENT
  Age: 69 Year
  Sex: Female

DRUGS (1)
  1. PRALUENT [Suspect]
     Active Substance: ALIROCUMAB
     Dosage: 75 MG, QOW
     Dates: start: 201903

REACTIONS (7)
  - Injection site vesicles [Recovering/Resolving]
  - Injection site swelling [Recovering/Resolving]
  - Loss of personal independence in daily activities [Unknown]
  - Injection site pruritus [Unknown]
  - Myalgia [Unknown]
  - Movement disorder [Unknown]
  - Injection site erythema [Recovering/Resolving]

NARRATIVE: CASE EVENT DATE: 2019
